FAERS Safety Report 14431262 (Version 1)
Quarter: 2018Q1

REPORT INFORMATION
  Report Type: Report from Study
  Country: HN (occurrence: HN)
  Receive Date: 20180124
  Receipt Date: 20180124
  Transmission Date: 20180509
  Serious: Yes (Other)
  Sender: FDA-Public Use
  Company Number: PHHY2018HN008529

PATIENT
  Age: 87 Year
  Sex: Female

DRUGS (2)
  1. EXFORGE [Suspect]
     Active Substance: AMLODIPINE BESYLATE\VALSARTAN
     Indication: PRODUCT USED FOR UNKNOWN INDICATION
     Dosage: (AMLODIPINE 10 MG, VALSARTAN 320 MG)
     Route: 065
  2. CO-DIOVAN [Suspect]
     Active Substance: HYDROCHLOROTHIAZIDE\VALSARTAN
     Indication: PRODUCT USED FOR UNKNOWN INDICATION
     Dosage: (HYDROCHLOROTHIAZIDE 12.5 MG, VALSARTAN 320 MG)
     Route: 065

REACTIONS (6)
  - General physical health deterioration [Unknown]
  - Hypertension [Unknown]
  - Malaise [Unknown]
  - Mobility decreased [Unknown]
  - Asthma [Unknown]
  - Cardiac disorder [Unknown]
